FAERS Safety Report 5825540-X (Version None)
Quarter: 2008Q3

REPORT INFORMATION
  Report Type: 
  Country: None (occurrence: None)
  Receive Date: 20080723
  Receipt Date: 20080710
  Transmission Date: 20090109
  Serious: Yes (Hospitalization)
  Sender: FDA-Public Use
  Company Number: 2008BI017329

PATIENT
  Age: 91 Year
  Sex: Female

DRUGS (15)
  1. ZEVALIN [Suspect]
     Indication: NON-HODGKIN'S LYMPHOMA
     Dosage: 20.2 MCI;1X;IV
     Route: 042
     Dates: start: 20060131
  2. RITUXIMAB [Concomitant]
  3. FAMOTIDINE [Concomitant]
  4. AMLODIPINE [Concomitant]
  5. LATANOPROST [Concomitant]
  6. LOPERAMIDE HCL [Concomitant]
  7. METOPROLOL SUCCINATE EXTENDED RELEASE [Concomitant]
  8. OXYBUTYNIN CHLORIDE [Concomitant]
  9. OXYCODONE HCL [Concomitant]
  10. TIMOLOL MALEATE [Concomitant]
  11. TRIAMTERENE 37.5 MG/HYDROCHLOROTHIAZIDE 25 MG [Concomitant]
  12. THERAPEUTIC MULTIVITAMINS [Concomitant]
  13. CALCIUM CARBONATE [Concomitant]
  14. SIMVASTATIN [Concomitant]
  15. ACETAMINOPHEN [Concomitant]

REACTIONS (15)
  - BRAIN SCAN ABNORMAL [None]
  - CALCINOSIS [None]
  - CENTRAL NERVOUS SYSTEM LESION [None]
  - CEREBELLAR INFARCTION [None]
  - CEREBROVASCULAR ACCIDENT [None]
  - DIASTOLIC DYSFUNCTION [None]
  - EMBOLIC STROKE [None]
  - HEADACHE [None]
  - MICROANGIOPATHY [None]
  - PHARYNGOESOPHAGEAL DIVERTICULUM [None]
  - PNEUMONIA ASPIRATION [None]
  - SEPSIS [None]
  - SPLENIC LESION [None]
  - TROPONIN INCREASED [None]
  - VENTRICULAR HYPERTROPHY [None]
